FAERS Safety Report 16407062 (Version 2)
Quarter: 2019Q2

REPORT INFORMATION
  Report Type: Spontaneous
  Country: GR (occurrence: GR)
  Receive Date: 20190608
  Receipt Date: 20190610
  Transmission Date: 20190711
  Serious: Yes (Other)
  Sender: FDA-Public Use
  Company Number: GR-BRISTOL-MYERS SQUIBB COMPANY-BMS-2019-053439

PATIENT
  Age: 76 Year

DRUGS (1)
  1. OPDIVO [Suspect]
     Active Substance: NIVOLUMAB
     Indication: PRODUCT USED FOR UNKNOWN INDICATION
     Dosage: 200 MILLIGRAM, Q2WK
     Route: 042
     Dates: start: 201806

REACTIONS (6)
  - Respiratory tract infection [Unknown]
  - Hydrothorax [Unknown]
  - Dyspnoea [Unknown]
  - Pleural effusion [Unknown]
  - Pulmonary mass [Unknown]
  - Cough [Unknown]

NARRATIVE: CASE EVENT DATE: 201808
